FAERS Safety Report 8353178-1 (Version None)
Quarter: 2012Q2

REPORT INFORMATION
  Report Type: 
  Country: None (occurrence: None)
  Receive Date: 20120511
  Receipt Date: 20120502
  Transmission Date: 20120825
  Serious: Yes (Other)
  Sender: FDA-Public Use
  Company Number: US-FRI-1000030246

PATIENT
  Age: 78 Year
  Sex: Male

DRUGS (3)
  1. VIIBRYD [Suspect]
     Dosage: 20 MG
  2. VIIBRYD [Suspect]
     Dosage: 10 MG
  3. VIIBRYD [Suspect]
     Dosage: 40 MG

REACTIONS (6)
  - SCREAMING [None]
  - AGITATION [None]
  - NIGHTMARE [None]
  - SUICIDAL IDEATION [None]
  - ANXIETY [None]
  - PHOTOPHOBIA [None]
